FAERS Safety Report 4693634-0 (Version None)
Quarter: 2005Q2

REPORT INFORMATION
  Report Type: 
  Country: None (occurrence: None)
  Receive Date: 20050616
  Receipt Date: 20050610
  Transmission Date: 20051028
  Serious: Yes (Life-Threatening, Hospitalization)
  Sender: FDA-Public Use
  Company Number: 26741

PATIENT
  Age: 87 Year
  Sex: Male

DRUGS (5)
  1. NITROGLYCERIN [Suspect]
     Indication: ANGINA PECTORIS
     Dosage: 1 DOSAGE FORMS (1 DOSAGE FORMS, 1 IN 1 DAY (S)) TRANSDERMAL
     Route: 062
     Dates: start: 20030101, end: 20050319
  2. ALDACTONE [Suspect]
     Indication: ESSENTIAL HYPERTENSION
     Dosage: 25 MG (25 MG, 1 IN 1 DAY (S)) ORAL
     Route: 048
     Dates: end: 20050319
  3. DIAMICRON (GLICLAZIDE) [Suspect]
     Indication: DIABETES MELLITUS
     Dosage: 30 MG (30 MG, 1 IN 1 DAY (S)) ORAL
     Route: 048
     Dates: start: 20000101, end: 20050319
  4. NICARDIPINE HCL [Suspect]
     Indication: ESSENTIAL HYPERTENSION
     Dosage: 50 MG (50 MG, 1 IN 1 DAY (S)) ORAL
     Route: 048
     Dates: end: 20050319
  5. PLAVIX [Suspect]
     Indication: PROPHYLAXIS
     Dosage: 1 DOSAGE FORMS (1 DOSAGE FORMS, 1 IN 1 DAY (S)) ORAL
     Route: 048
     Dates: start: 20030101, end: 20050319

REACTIONS (6)
  - HYPERSENSITIVITY [None]
  - IATROGENIC INJURY [None]
  - IMMUNE SYSTEM DISORDER [None]
  - PURPURA [None]
  - RECTAL HAEMORRHAGE [None]
  - THROMBOCYTOPENIA [None]
